FAERS Safety Report 19280633 (Version 2)
Quarter: 2021Q3

REPORT INFORMATION
  Report Type: Spontaneous
  Country: JP (occurrence: JP)
  Receive Date: 20210521
  Receipt Date: 20210709
  Transmission Date: 20211014
  Serious: Yes (Life-Threatening, Other)
  Sender: FDA-Public Use
  Company Number: JP-ASTELLAS-2021JP008963

PATIENT
  Sex: Male
  Weight: 2 kg

DRUGS (4)
  1. PROGRAF [Suspect]
     Active Substance: TACROLIMUS
     Indication: TAKAYASU^S ARTERITIS
     Route: 064
     Dates: start: 20150319, end: 20150520
  2. PROGRAF [Suspect]
     Active Substance: TACROLIMUS
     Route: 064
     Dates: start: 20150702
  3. PROGRAF [Suspect]
     Active Substance: TACROLIMUS
     Route: 064
     Dates: start: 20150521, end: 20150701
  4. PROGRAF [Suspect]
     Active Substance: TACROLIMUS
     Indication: TAKAYASU^S ARTERITIS
     Dosage: 0.5 MG, TWICE DAILY
     Route: 064
     Dates: start: 20150702

REACTIONS (2)
  - Cyanosis central [Recovered/Resolved]
  - Exposure via breast milk [Unknown]
